FAERS Safety Report 21308908 (Version 2)
Quarter: 2022Q3

REPORT INFORMATION
  Report Type: Report from Study
  Country: US (occurrence: US)
  Receive Date: 20220908
  Receipt Date: 20220923
  Transmission Date: 20221027
  Serious: Yes (Death, Other)
  Sender: FDA-Public Use
  Company Number: US-ACADIA PHARMACEUTICALS INC.-ACA-2022-PIM-002921

PATIENT
  Age: 81 Year
  Sex: Male

DRUGS (7)
  1. NUPLAZID [Suspect]
     Active Substance: PIMAVANSERIN TARTRATE
     Indication: Parkinson^s disease
     Dosage: 34 MILLIGRAM, QD
     Route: 048
     Dates: start: 20191113
  2. SELEGILINE [Concomitant]
     Active Substance: SELEGILINE
  3. RIVASTIGMINE [Concomitant]
     Active Substance: RIVASTIGMINE
  4. METOPROLOL [Concomitant]
     Active Substance: METOPROLOL
  5. CELECOXIB [Concomitant]
     Active Substance: CELECOXIB
  6. TOVIAZ [Concomitant]
     Active Substance: FESOTERODINE FUMARATE
  7. CARBIDOPA AND LEVODOPA [Concomitant]
     Active Substance: CARBIDOPA\LEVODOPA

REACTIONS (1)
  - Parkinson^s disease [Fatal]

NARRATIVE: CASE EVENT DATE: 20220824
